FAERS Safety Report 18079442 (Version 1)
Quarter: 2020Q3

REPORT INFORMATION
  Report Type: Spontaneous
  Country: US (occurrence: US)
  Receive Date: 20200728
  Receipt Date: 20200728
  Transmission Date: 20201103
  Serious: Yes (Other)
  Sender: FDA-Public Use
  Company Number: US-PFIZER INC-2020285211

PATIENT
  Age: 27 Year
  Sex: Female

DRUGS (2)
  1. PREGABALIN. [Suspect]
     Active Substance: PREGABALIN
     Dosage: UNK
  2. DIAMORPHINE [Interacting]
     Active Substance: DIAMORPHINE
     Dosage: UNK

REACTIONS (4)
  - Intentional product misuse [Unknown]
  - Drug interaction [Unknown]
  - Drug abuse [Unknown]
  - Prescription drug used without a prescription [Unknown]
